FAERS Safety Report 8927158 (Version 1)
Quarter: 2012Q4

REPORT INFORMATION
  Report Type: 
  Country: PE (occurrence: PE)
  Receive Date: 20121127
  Receipt Date: 20121127
  Transmission Date: 20130627
  Serious: Yes (Other)
  Sender: FDA-Public Use
  Company Number: PE-PFIZER INC-2012296093

PATIENT
  Age: 67 Year
  Sex: Male

DRUGS (4)
  1. PRISTIQ [Suspect]
     Dosage: UNK
     Route: 048
  2. LIPITOR [Suspect]
     Dosage: 20 mg, 1x/day
     Route: 048
     Dates: start: 2010
  3. LIPITOR [Suspect]
     Dosage: 40 mg, 1x/day
     Route: 048
  4. MEMANTINE [Concomitant]
     Indication: ALZHEIMER^S DISEASE
     Dosage: UNK

REACTIONS (1)
  - Hallucination [Unknown]
